FAERS Safety Report 4860675-X (Version None)
Quarter: 2005Q4

REPORT INFORMATION
  Report Type: 
  Country: None (occurrence: None)
  Receive Date: 20051216
  Receipt Date: 20051128
  Transmission Date: 20060501
  Serious: Yes (Hospitalization, Other)
  Sender: FDA-Public Use
  Company Number: US_0507120030

PATIENT
  Age: 37 Year
  Sex: Male
  Weight: 69.1 kg

DRUGS (9)
  1. ZYPREXA [Suspect]
     Indication: PSYCHOTIC DISORDER
     Dosage: SEE IMAGE, ORAL
     Route: 048
     Dates: start: 20040201, end: 20040405
  2. ZYPREXA [Suspect]
     Indication: PSYCHOTIC DISORDER
     Dosage: SEE IMAGE, ORAL
     Route: 048
     Dates: start: 20040405
  3. SEROQUEL [Concomitant]
  4. RISPERDAL [Concomitant]
  5. GEODON [Concomitant]
  6. CELEXA [Concomitant]
  7. DEPAKOTE [Concomitant]
  8. TEMAZEPAM [Concomitant]
  9. CLONAZEPAM [Concomitant]

REACTIONS (10)
  - BLOOD POTASSIUM DECREASED [None]
  - BLOOD SODIUM DECREASED [None]
  - COMPUTERISED TOMOGRAM ABNORMAL [None]
  - DEHYDRATION [None]
  - DIABETES MELLITUS [None]
  - DIABETIC KETOACIDOSIS [None]
  - ELECTROCARDIOGRAM T WAVE PEAKED [None]
  - PLATELET COUNT DECREASED [None]
  - RENAL FAILURE ACUTE [None]
  - TROPONIN INCREASED [None]
